FAERS Safety Report 10340017 (Version 2)
Quarter: 2014Q3

REPORT INFORMATION
  Report Type: Report from Study
  Country: PT (occurrence: PT)
  Receive Date: 20140724
  Receipt Date: 20140926
  Transmission Date: 20150326
  Serious: Yes (Other)
  Sender: FDA-Public Use
  Company Number: PT-ASTELLAS-2014US008664

PATIENT
  Age: 55 Year
  Sex: Male

DRUGS (3)
  1. CARBOPLATIN. [Concomitant]
     Active Substance: CARBOPLATIN
     Indication: PRODUCT USED FOR UNKNOWN INDICATION
     Dosage: UNK UNK, CYCLIC
     Route: 065
     Dates: start: 201402
  2. GEMCITABINE [Concomitant]
     Active Substance: GEMCITABINE\GEMCITABINE HYDROCHLORIDE
     Indication: PRODUCT USED FOR UNKNOWN INDICATION
     Dosage: UNK UNK, CYCLIC
     Route: 065
     Dates: start: 201402
  3. ERLOTINIB [Suspect]
     Active Substance: ERLOTINIB
     Indication: LUNG ADENOCARCINOMA STAGE III
     Route: 048
     Dates: start: 20130423, end: 201309

REACTIONS (11)
  - Malignant neoplasm progression [Unknown]
  - Metastases to bone [Unknown]
  - Quality of life decreased [Unknown]
  - General physical health deterioration [Recovered/Resolved]
  - Hepatic enzyme increased [Unknown]
  - Nausea [Unknown]
  - Metastases to lung [Unknown]
  - Lung neoplasm [Unknown]
  - Haematotoxicity [Unknown]
  - Metastases to central nervous system [Unknown]
  - Decreased appetite [Unknown]

NARRATIVE: CASE EVENT DATE: 20130901
